FAERS Safety Report 6369978-3 (Version None)
Quarter: 2009Q3

REPORT INFORMATION
  Report Type: 
  Country: None (occurrence: None)
  Receive Date: 20090923
  Receipt Date: 20070405
  Transmission Date: 20100115
  Serious: Yes (Other)
  Sender: FDA-Public Use
  Company Number: US-ASTRAZENECA-2006UW05664

PATIENT
  Age: 11 Year
  Sex: Female
  Weight: 35.4 kg

DRUGS (21)
  1. SEROQUEL [Suspect]
     Indication: ANXIETY
     Route: 048
     Dates: start: 20021201, end: 20040901
  2. SEROQUEL [Suspect]
     Indication: BIPOLAR DISORDER
     Route: 048
     Dates: start: 20021201, end: 20040901
  3. SEROQUEL [Suspect]
     Indication: AFFECTIVE DISORDER
     Route: 048
     Dates: start: 20021201, end: 20040901
  4. SEROQUEL [Suspect]
     Dosage: 25-50MG AT NIGHT, THEN TITRATE UPTO 100-200, 100MG DAILY, TAKE 1-2 TABLETS AT BEDTIME
     Route: 048
     Dates: start: 20021205, end: 20041029
  5. SEROQUEL [Suspect]
     Dosage: 25-50MG AT NIGHT, THEN TITRATE UPTO 100-200, 100MG DAILY, TAKE 1-2 TABLETS AT BEDTIME
     Route: 048
     Dates: start: 20021205, end: 20041029
  6. SEROQUEL [Suspect]
     Dosage: 25-50MG AT NIGHT, THEN TITRATE UPTO 100-200, 100MG DAILY, TAKE 1-2 TABLETS AT BEDTIME
     Route: 048
     Dates: start: 20021205, end: 20041029
  7. RISPERDAL [Suspect]
     Indication: DELUSION
     Dosage: ONE AND ONE HALF TWO TIMES A DAY, 1 MG TWO TIMES A DAY
     Route: 048
     Dates: start: 20000101
  8. CLOZAPINE [Concomitant]
  9. ADDERALL XR 30 [Concomitant]
     Indication: ATTENTION DEFICIT/HYPERACTIVITY DISORDER
     Route: 048
  10. EFFEXOR [Concomitant]
  11. CLONAZEPAM [Concomitant]
     Dosage: 0.5 MG ONE HALF TABLET TWO TIMES A DAY
     Route: 048
  12. SINGULAIR [Concomitant]
     Dates: start: 20040914
  13. XOPENEX [Concomitant]
  14. PREDNISONE TAB [Concomitant]
  15. MIRALAX [Concomitant]
  16. SYNALAR [Concomitant]
  17. DEPAKOTE [Concomitant]
     Indication: MOOD SWINGS
     Dosage: 250 MG TWO TIMES A DAY, ONE TAB EVERY MORNING, TWO TAB AT NIGHT
     Dates: start: 20021205
  18. DEPAKOTE [Concomitant]
     Indication: ANXIETY
     Dosage: 250 MG TWO TIMES A DAY, ONE TAB EVERY MORNING, TWO TAB AT NIGHT
     Dates: start: 20021205
  19. ADVAIR HFA [Concomitant]
     Route: 048
  20. ADVAIR HFA [Concomitant]
     Dates: start: 20021205
  21. PREVACID [Concomitant]
     Dates: start: 20040916

REACTIONS (2)
  - PANCREATITIS [None]
  - TARDIVE DYSKINESIA [None]
